FAERS Safety Report 21865484 (Version 1)
Quarter: 2023Q1

REPORT INFORMATION
  Report Type: Spontaneous
  Country: FR (occurrence: FR)
  Receive Date: 20230116
  Receipt Date: 20230116
  Transmission Date: 20230418
  Serious: Yes (Other)
  Sender: FDA-Public Use
  Company Number: None

PATIENT
  Age: 60 Year
  Sex: Female
  Weight: 50 kg

DRUGS (3)
  1. DOCETAXEL [Suspect]
     Active Substance: DOCETAXEL
     Indication: Adenocarcinoma gastric
     Dosage: 70 MG (1ST TREATMENT: 70 MG)
     Route: 042
     Dates: start: 20220920
  2. OXALIPLATIN [Suspect]
     Active Substance: OXALIPLATIN
     Indication: Adenocarcinoma gastric
     Dosage: 130 MG (1ST TREATMENT: 130 MG)
     Route: 042
     Dates: start: 20220920
  3. FLUOROURACIL [Suspect]
     Active Substance: FLUOROURACIL
     Indication: Adenocarcinoma gastric
     Dosage: 3900 MG (1ST TREATMENT: 3900 MG)
     Route: 042
     Dates: start: 20220920

REACTIONS (1)
  - Status epilepticus [Recovered/Resolved]

NARRATIVE: CASE EVENT DATE: 20220921
